FAERS Safety Report 4541163-7 (Version None)
Quarter: 2004Q4

REPORT INFORMATION
  Report Type: 
  Country: None (occurrence: None)
  Receive Date: 20041227
  Receipt Date: 20041221
  Transmission Date: 20050328
  Serious: Yes (Hospitalization)
  Sender: FDA-Public Use
  Company Number: HQWYE130921DEC04

PATIENT
  Age: 77 Year
  Sex: Male

DRUGS (4)
  1. CORDARONE [Suspect]
     Indication: VENTRICULAR FIBRILLATION
     Dosage: SEE IMAGE
     Route: 048
     Dates: end: 20040509
  2. CORDARONE [Suspect]
     Indication: VENTRICULAR FIBRILLATION
     Dosage: SEE IMAGE
     Route: 048
     Dates: start: 20020101
  3. CAPTOPRIL [Concomitant]
  4. ASPIRIN [Concomitant]

REACTIONS (7)
  - BRONCHOPNEUMONIA [None]
  - CARDIAC FAILURE [None]
  - CHILLS [None]
  - LUNG DISORDER [None]
  - PULMONARY CONGESTION [None]
  - PYREXIA [None]
  - WEIGHT DECREASED [None]
